FAERS Safety Report 20711591 (Version 2)
Quarter: 2022Q2

REPORT INFORMATION
  Report Type: Spontaneous
  Country: JP (occurrence: JP)
  Receive Date: 20220414
  Receipt Date: 20220614
  Transmission Date: 20220721
  Serious: Yes (Other)
  Sender: FDA-Public Use
  Company Number: JP-ELI_LILLY_AND_COMPANY-JP202204005516

PATIENT
  Age: 67 Year
  Sex: Female

DRUGS (1)
  1. RETEVMO [Suspect]
     Active Substance: SELPERCATINIB
     Indication: Lung neoplasm malignant
     Dosage: 320 MG
     Route: 048
     Dates: start: 20220113

REACTIONS (3)
  - Hepatic function abnormal [Recovered/Resolved]
  - Hypertension [Recovered/Resolved]
  - Rash [Recovering/Resolving]

NARRATIVE: CASE EVENT DATE: 20220304
